FAERS Safety Report 20711634 (Version 1)
Quarter: 2022Q2

REPORT INFORMATION
  Report Type: Spontaneous
  Country: US (occurrence: US)
  Receive Date: 20220414
  Receipt Date: 20220414
  Transmission Date: 20220721
  Serious: No
  Sender: FDA-Public Use
  Company Number: US-PFIZER INC-202101013338

PATIENT
  Age: 46 Year
  Sex: Female
  Weight: 74.84 kg

DRUGS (3)
  1. CHANTIX [Suspect]
     Active Substance: VARENICLINE TARTRATE
     Indication: Smoking cessation therapy
     Dosage: 0.5 MG, 1X/DAY (1ST WEEK 0.5MG ONCE DAILY X3 DAYS)
     Dates: start: 20210713
  2. CHANTIX [Suspect]
     Active Substance: VARENICLINE TARTRATE
     Dosage: 0.5 MG, 2X/DAY (0.5MG MORNING AND EVENINGX4 DAYS)
  3. CHANTIX [Suspect]
     Active Substance: VARENICLINE TARTRATE
     Dosage: 1 MG, 2X/DAY (THEN 1 MG MORNING AND EVENING)

REACTIONS (2)
  - Recalled product administered [Unknown]
  - Nausea [Unknown]

NARRATIVE: CASE EVENT DATE: 20210713
